FAERS Safety Report 6248504-3 (Version None)
Quarter: 2009Q2

REPORT INFORMATION
  Report Type: 
  Country: None (occurrence: None)
  Receive Date: 20090629
  Receipt Date: 20090622
  Transmission Date: 20091009
  Serious: Yes (Other)
  Sender: FDA-Public Use
  Company Number: GB-ROCHE-640079

PATIENT
  Sex: Female

DRUGS (1)
  1. ROACCUTANE [Suspect]
     Indication: DRUG USE FOR UNKNOWN INDICATION
     Dosage: IT WAS REPORTED THAT THE PATIENT WAS TAKING ROACCUTANE FOR THE PAST 18 MONTHS AT THE TIME OF REPORT
     Route: 065

REACTIONS (1)
  - BREAST CANCER [None]
